FAERS Safety Report 23456656 (Version 1)
Quarter: 2024Q1

REPORT INFORMATION
  Report Type: Report from Study
  Country: US (occurrence: US)
  Receive Date: 20240130
  Receipt Date: 20240130
  Transmission Date: 20240410
  Serious: Yes (Death, Hospitalization, Other)
  Sender: FDA-Public Use
  Company Number: US-ABBVIE-5614119

PATIENT
  Sex: Male
  Weight: 68.492 kg

DRUGS (1)
  1. CREON [Suspect]
     Active Substance: PANCRELIPASE AMYLASE\PANCRELIPASE LIPASE\PANCRELIPASE PROTEASE
     Indication: Dyspepsia
     Dosage: STOP DATE TEXT: 25-JUL-2023 OR 26-JUL-2023?STRENGTH: 24000 UNIT?ONE TO TWO CAPSULES PER MEAL AND ...
     Route: 048
     Dates: start: 20230505, end: 20230725

REACTIONS (5)
  - Malignant neoplasm progression [Fatal]
  - Abdominal pain [Not Recovered/Not Resolved]
  - Cerebrovascular accident [Fatal]
  - Incoherent [Not Recovered/Not Resolved]
  - Investigation abnormal [Not Recovered/Not Resolved]

NARRATIVE: CASE EVENT DATE: 20230101
